FAERS Safety Report 21948865 (Version 1)
Quarter: 2023Q1

REPORT INFORMATION
  Report Type: Spontaneous
  Country: CA (occurrence: CA)
  Receive Date: 20230203
  Receipt Date: 20230203
  Transmission Date: 20230418
  Serious: Yes (Death, Other)
  Sender: FDA-Public Use
  Company Number: CA-002147023-NVSC2023CA022306

PATIENT
  Age: 60 Year
  Sex: Female

DRUGS (8)
  1. AZITHROMYCIN [Suspect]
     Active Substance: AZITHROMYCIN
     Indication: Systemic infection
     Dosage: UNK
     Route: 065
  2. AZITHROMYCIN [Suspect]
     Active Substance: AZITHROMYCIN
     Indication: Atypical mycobacterial infection
  3. MOXIFLOXACIN [Suspect]
     Active Substance: MOXIFLOXACIN
     Indication: Systemic infection
     Dosage: UNK
     Route: 065
  4. MOXIFLOXACIN [Suspect]
     Active Substance: MOXIFLOXACIN
     Indication: Atypical mycobacterial infection
  5. ETHAMBUTOL [Suspect]
     Active Substance: ETHAMBUTOL HYDROCHLORIDE
     Indication: Systemic infection
     Dosage: UNK
     Route: 065
  6. ETHAMBUTOL [Suspect]
     Active Substance: ETHAMBUTOL HYDROCHLORIDE
     Indication: Atypical mycobacterial infection
  7. RIFABUTIN [Suspect]
     Active Substance: RIFABUTIN
     Indication: Systemic infection
     Dosage: UNK
     Route: 065
  8. RIFABUTIN [Suspect]
     Active Substance: RIFABUTIN
     Indication: Atypical mycobacterial infection

REACTIONS (1)
  - Drug ineffective [Fatal]
